FAERS Safety Report 4429777-6 (Version None)
Quarter: 2004Q3

REPORT INFORMATION
  Report Type: 
  Country: None (occurrence: None)
  Receive Date: 20040816
  Receipt Date: 20040806
  Transmission Date: 20050211
  Serious: Yes (Death, Life-Threatening, Disabling)
  Sender: FDA-Public Use
  Company Number: 2004AP03066

PATIENT
  Age: 37 Year
  Sex: Male
  Weight: 93.2 kg

DRUGS (19)
  1. DIPRIVAN [Suspect]
     Indication: GENERAL ANAESTHESIA
     Dosage: 1 % IV
     Route: 042
     Dates: start: 20030122, end: 20030122
  2. DIAZEPAM [Suspect]
     Indication: ANAESTHETIC PREMEDICATION
     Dosage: 10 MG DAILY PO
     Route: 048
     Dates: start: 20030122, end: 20030122
  3. FENTANEST [Suspect]
     Indication: ANAESTHESIA
     Dosage: 250 MG DAILY
     Dates: start: 20030122, end: 20030122
  4. MORPHINE HYDROCHLORIDE [Suspect]
     Indication: ANALGESIC THERAPY
     Dosage: 3 MG DAILY ED
     Route: 008
     Dates: start: 20030122, end: 20030122
  5. MORPHINE HYDROCHLORIDE [Suspect]
     Indication: ANALGESIC THERAPY
     Dosage: 17 MG DAILY ED
     Route: 008
     Dates: start: 20030122, end: 20030122
  6. SEVOFLURANE [Suspect]
     Indication: ANAESTHESIA
     Dosage: 60 ML DAILY IH
     Route: 055
     Dates: start: 20030122, end: 20030122
  7. SERENACE [Suspect]
     Indication: SEDATIVE THERAPY
     Dosage: 10 MG DAILY
     Dates: start: 20030127, end: 20030128
  8. HORIZON [Suspect]
     Indication: SEDATIVE THERAPY
     Dosage: 10 MG DAILY
     Dates: start: 20030130, end: 20030130
  9. MIDAZOLAM HCL [Suspect]
     Indication: SEDATIVE THERAPY
     Dosage: 50 MG DAILY
     Dates: start: 20030130, end: 20030306
  10. LEPETAN [Suspect]
     Indication: SEDATIVE THERAPY
     Dosage: 0.4 MG DAILY
     Dates: start: 20030130, end: 20030306
  11. CARBOCAIN [Concomitant]
  12. ANAPEINE [Concomitant]
  13. MUSCULAX [Concomitant]
  14. PANCURONIUM BROMIDE [Concomitant]
  15. LAUGHING GAS [Concomitant]
  16. OXYGEN [Concomitant]
  17. EPHEDRINE [Concomitant]
  18. ATROPINE SULFATE [Concomitant]
  19. VAGOSTIGMIN [Concomitant]

REACTIONS (16)
  - ANURIA [None]
  - BLOOD PRESSURE DECREASED [None]
  - CARDIO-RESPIRATORY ARREST [None]
  - CHOKING [None]
  - CONVULSION [None]
  - DIARRHOEA [None]
  - DYSPHAGIA [None]
  - EMPYEMA [None]
  - GASTROINTESTINAL INFECTION [None]
  - HAEMODIALYSIS [None]
  - HAEMORRHAGE [None]
  - PROCEDURAL COMPLICATION [None]
  - PULMONARY THROMBOSIS [None]
  - RENAL FAILURE ACUTE [None]
  - RESTLESSNESS [None]
  - RHABDOMYOLYSIS [None]
